FAERS Safety Report 5856456-0 (Version None)
Quarter: 2008Q3

REPORT INFORMATION
  Report Type: 
  Country: None (occurrence: None)
  Receive Date: 20080825
  Receipt Date: 20080805
  Transmission Date: 20090109
  Serious: No
  Sender: FDA-Public Use
  Company Number: A0726869A

PATIENT
  Age: 50 Year
  Sex: Male

DRUGS (2)
  1. VERAMYST [Suspect]
     Route: 045
     Dates: end: 20080507
  2. NO CONCURRENT MEDICATION [Concomitant]

REACTIONS (2)
  - CONDITION AGGRAVATED [None]
  - DRUG INEFFECTIVE [None]
